FAERS Safety Report 5869778-4 (Version None)
Quarter: 2008Q3

REPORT INFORMATION
  Report Type: 
  Country: None (occurrence: None)
  Receive Date: 20080902
  Receipt Date: 20080825
  Transmission Date: 20090109
  Serious: Yes (Hospitalization)
  Sender: FDA-Public Use
  Company Number: A0744536A

PATIENT
  Age: 55 Year
  Sex: Female

DRUGS (6)
  1. ASPIRIN + CAFFEINE + SALICYLAMIDE POWDER (ASPIRIN+CAFFEINE+SALICYLA) [Suspect]
     Indication: DRUG USE FOR UNKNOWN INDICATION
     Dosage: ORAL
     Route: 048
  2. BLINDED TRIAL MEDICATION (FORMULATION UNKNOWN) (BLINDED TRIAL MEDICATI [Suspect]
     Indication: THROMBOSIS PROPHYLAXIS
     Dosage: TWICE PER DAY / ORAL
     Route: 048
     Dates: start: 20080611, end: 20080711
  3. ENOXAPARIN (FORMULATION UNKNOWN) (ENOXAPARIN) [Suspect]
     Indication: THROMBOSIS PROPHYLAXIS
     Dosage: /PER DAY / SUBCUTANEOUS
     Route: 058
     Dates: start: 20080611, end: 20080617
  4. FRUSEMIDE [Concomitant]
  5. ALISKIREN [Concomitant]
  6. LISINOPRIL [Concomitant]

REACTIONS (9)
  - ACQUIRED DIAPHRAGMATIC EVENTRATION [None]
  - CARDIOMEGALY [None]
  - CHILLS [None]
  - HEADACHE [None]
  - HYPOVOLAEMIA [None]
  - MALAISE [None]
  - MUCOSAL DRYNESS [None]
  - PULMONARY VASCULAR DISORDER [None]
  - RENAL FAILURE ACUTE [None]
